FAERS Safety Report 13022045 (Version 1)
Quarter: 2016Q4

REPORT INFORMATION
  Report Type: Spontaneous
  Country: US (occurrence: US)
  Receive Date: 20161213
  Receipt Date: 20161213
  Transmission Date: 20170207
  Serious: No
  Sender: FDA-Public Use
  Company Number: US-SHIRE-US201618158

PATIENT
  Age: 70 Year
  Sex: Female
  Weight: 46.71 kg

DRUGS (3)
  1. XIIDRA [Suspect]
     Active Substance: LIFITEGRAST
     Indication: DRY EYE
     Dosage: 1 GTT (BOTH EYES), 2X/DAY:BID
     Route: 047
     Dates: start: 201610, end: 20161126
  2. PLASMA [Concomitant]
     Active Substance: HUMAN PLASMA
     Indication: DRY EYE
     Dosage: UNK, 4X/DAY:QID
     Route: 047
     Dates: start: 2015
  3. SYSTANE (HYPROMELLOSE 2910 (4000 MPA.S)) [Concomitant]
     Active Substance: HYPROMELLOSE 2910 (4000 MPA.S)
     Indication: DRY EYE
     Dosage: UNK, UNKNOWN
     Route: 047
     Dates: start: 2013

REACTIONS (3)
  - Weight increased [Not Recovered/Not Resolved]
  - Lacrimation increased [Recovered/Resolved]
  - Instillation site pain [Not Recovered/Not Resolved]

NARRATIVE: CASE EVENT DATE: 2016
